FAERS Safety Report 6518771-7 (Version None)
Quarter: 2009Q4

REPORT INFORMATION
  Report Type: 
  Country: None (occurrence: None)
  Receive Date: 20091228
  Receipt Date: 20091217
  Transmission Date: 20100525
  Serious: Yes (Hospitalization)
  Sender: FDA-Public Use
  Company Number: BE-JNJFOC-20091200777

PATIENT
  Age: 40 Year
  Sex: Male
  Weight: 69 kg

DRUGS (3)
  1. REMICADE [Suspect]
     Indication: CROHN'S DISEASE
     Dosage: TOTAL NUMBER OF INFUSIONS RECEIVED: 1
     Route: 042
     Dates: start: 20091117, end: 20091123
  2. IMURAN [Concomitant]
  3. PENTASA [Concomitant]

REACTIONS (1)
  - HERPES ZOSTER [None]
